FAERS Safety Report 5043008-8 (Version None)
Quarter: 2006Q2

REPORT INFORMATION
  Report Type: 
  Country: None (occurrence: None)
  Receive Date: 20060628
  Receipt Date: 20060619
  Transmission Date: 20061013
  Serious: Yes (Hospitalization)
  Sender: FDA-Public Use
  Company Number: 2006-06-1207

PATIENT
  Age: 62 Year
  Sex: Male

DRUGS (2)
  1. TEMODAL [Suspect]
     Indication: GLIOMA
     Dosage: ORAL
     Route: 048
     Dates: start: 20060502, end: 20060511
  2. RADIATION THERAPY [Concomitant]

REACTIONS (6)
  - DEHYDRATION [None]
  - FATIGUE [None]
  - NAUSEA [None]
  - PULMONARY EMBOLISM [None]
  - SKIN HYPERPIGMENTATION [None]
  - VENOUS THROMBOSIS [None]
